FAERS Safety Report 4429496-6 (Version None)
Quarter: 2004Q3

REPORT INFORMATION
  Report Type: 
  Country: None (occurrence: None)
  Receive Date: 20040818
  Receipt Date: 20040818
  Transmission Date: 20050211
  Serious: Yes (Life-Threatening, Hospitalization)
  Sender: FDA-Public Use
  Company Number: None

PATIENT
  Age: 65 Year
  Sex: Male
  Weight: 68.8 kg

DRUGS (16)
  1. CELECOXIB [Suspect]
     Indication: OSTEOARTHRITIS
     Dosage: 200 MG DAILY PO
     Route: 048
  2. LISINOPRIL [Suspect]
     Indication: HYPERTENSION
     Dosage: 20MG 2 TABS PO DAILY
     Route: 048
  3. ALLEGRA [Concomitant]
  4. AMARYL [Concomitant]
  5. BUMETANIDE [Concomitant]
  6. CARBIDOPA/LEVADOPA [Concomitant]
  7. CELEBREX [Concomitant]
  8. COREG [Concomitant]
  9. COUMADIN [Concomitant]
  10. DIGOXIN [Concomitant]
  11. FLONASE [Concomitant]
  12. LISINOPRIL [Concomitant]
  13. MIRTAZAPINE [Concomitant]
  14. NEFAZODONE HCL [Concomitant]
  15. PRAZOSIN HCL [Concomitant]
  16. SPIRONOLACTONE [Concomitant]

REACTIONS (3)
  - DRUG TOXICITY [None]
  - HYPERKALAEMIA [None]
  - RENAL FAILURE ACUTE [None]
